FAERS Safety Report 7281844-8 (Version None)
Quarter: 2011Q1

REPORT INFORMATION
  Report Type: 
  Country: None (occurrence: None)
  Receive Date: 20110208
  Receipt Date: 20110203
  Transmission Date: 20110831
  Serious: Yes (Hospitalization)
  Sender: FDA-Public Use
  Company Number: US-AMGEN-USASP2011006845

PATIENT
  Age: 57 Year
  Sex: Female

DRUGS (1)
  1. ENBREL [Suspect]
     Indication: PSORIATIC ARTHROPATHY
     Dates: start: 20081001, end: 20101201

REACTIONS (4)
  - ANKLE FRACTURE [None]
  - POSTOPERATIVE WOUND INFECTION [None]
  - IMPAIRED HEALING [None]
  - DRUG INEFFECTIVE [None]
